FAERS Safety Report 8352762-9 (Version None)
Quarter: 2012Q2

REPORT INFORMATION
  Report Type: 
  Country: None (occurrence: None)
  Receive Date: 20120509
  Receipt Date: 20120427
  Transmission Date: 20120825
  Serious: Yes (Other)
  Sender: FDA-Public Use
  Company Number: CO-JNJFOC-20120413891

PATIENT
  Age: 84 Year
  Sex: Female

DRUGS (3)
  1. DACOGEN [Suspect]
     Indication: MYELODYSPLASTIC SYNDROME
     Dosage: 30 MG, INTRAVENOUS
     Route: 042
  2. ERYTHROPOIETIN (ERYTHROPOIETIN) [Concomitant]
  3. DANAZOL [Concomitant]

REACTIONS (1)
  - EXTRAVASATION [None]
